FAERS Safety Report 7720543-2 (Version None)
Quarter: 2011Q3

REPORT INFORMATION
  Report Type: 
  Country: None (occurrence: None)
  Receive Date: 20110831
  Receipt Date: 20110831
  Transmission Date: 20111222
  Serious: Yes (Life-Threatening)
  Sender: FDA-Public Use
  Company Number: None

PATIENT
  Age: 11 Year
  Sex: Male
  Weight: 31.751 kg

DRUGS (1)
  1. HUMALOG KWIKPEN [Suspect]
     Indication: DIABETES MELLITUS
     Dosage: 7-20UNITS
     Route: 023
     Dates: start: 20110511, end: 20110829

REACTIONS (4)
  - PRODUCT LABEL ISSUE [None]
  - MEDICATION ERROR [None]
  - ACCIDENTAL EXPOSURE [None]
  - COMA [None]
